FAERS Safety Report 5208173-8 (Version None)
Quarter: 2007Q1

REPORT INFORMATION
  Report Type: 
  Country: None (occurrence: None)
  Receive Date: 20070115
  Receipt Date: 20070109
  Transmission Date: 20070707
  Serious: Yes (Hospitalization)
  Sender: FDA-Public Use
  Company Number: CZ-ELI_LILLY_AND_COMPANY-CZ200611002214

PATIENT
  Age: 18 Year
  Sex: Female

DRUGS (5)
  1. ZYPREXA [Suspect]
     Indication: HALLUCINATION
     Dosage: 5 MG, DAILY (1/D)
     Route: 048
     Dates: start: 20061010
  2. FERRONAT - SLOW RELEASE [Concomitant]
     Indication: ANAEMIA
     Dosage: 285 MG, 2/D
     Route: 048
     Dates: start: 20061012
  3. ACIDUM FOLICUM [Concomitant]
     Indication: ANAEMIA
     Dosage: 20 MG, DAILY (1/D)
     Route: 048
     Dates: start: 20061012
  4. MAGNESIUM LACTATE [Concomitant]
     Dosage: 1,5 MG, DAILY (1/D)
     Route: 048
     Dates: start: 20060914, end: 20061005
  5. MARIJUANA [Concomitant]

REACTIONS (4)
  - CAESAREAN SECTION [None]
  - DRUG ABUSER [None]
  - DRUG EXPOSURE DURING PREGNANCY [None]
  - PROLONGED LABOUR [None]
